FAERS Safety Report 16111089 (Version 1)
Quarter: 2019Q2

REPORT INFORMATION
  Report Type: Spontaneous
  Country: US (occurrence: US)
  Receive Date: 20190322
  Receipt Date: 20190322
  Transmission Date: 20190711
  Serious: Yes (Other)
  Sender: FDA-Public Use
  Company Number: None

PATIENT
  Age: 19 Year
  Sex: Male
  Weight: 80.1 kg

DRUGS (3)
  1. DEPAKOTE [Concomitant]
     Active Substance: DIVALPROEX SODIUM
  2. AUSTEDO [Suspect]
     Active Substance: DEUTETRABENAZINE
     Indication: DYSKINESIA
     Route: 048
     Dates: start: 20190226, end: 20190322
  3. CLONIDINE. [Concomitant]
     Active Substance: CLONIDINE

REACTIONS (4)
  - Abdominal pain upper [None]
  - Lethargy [None]
  - Pain [None]
  - Mobility decreased [None]

NARRATIVE: CASE EVENT DATE: 20190226
